FAERS Safety Report 18596042 (Version 1)
Quarter: 2020Q4

REPORT INFORMATION
  Report Type: Spontaneous
  Country: US (occurrence: US)
  Receive Date: 20201209
  Receipt Date: 20201209
  Transmission Date: 20210114
  Serious: Yes (Hospitalization)
  Sender: FDA-Public Use
  Company Number: None

PATIENT
  Age: 54 Year
  Sex: Female
  Weight: 152.55 kg

DRUGS (16)
  1. PROAIR HFA [Concomitant]
     Active Substance: ALBUTEROL SULFATE
  2. ZETIA [Concomitant]
     Active Substance: EZETIMIBE
  3. BOSULIF [Suspect]
     Active Substance: BOSUTINIB MONOHYDRATE
     Indication: CHRONIC MYELOID LEUKAEMIA
     Route: 048
     Dates: start: 20201112
  4. BUMEX [Concomitant]
     Active Substance: BUMETANIDE
  5. FLUTICASONE-SALMETEROL [Concomitant]
  6. NITROGLYCERIN. [Concomitant]
     Active Substance: NITROGLYCERIN
  7. NYSTATIN. [Concomitant]
     Active Substance: NYSTATIN
  8. ATORVASTATIN CALCIUM. [Concomitant]
     Active Substance: ATORVASTATIN CALCIUM
  9. FAMOTIDINE. [Concomitant]
     Active Substance: FAMOTIDINE
  10. AMLODIPINE BESYLATE. [Concomitant]
     Active Substance: AMLODIPINE BESYLATE
  11. CLOTRIMAZOLE ANTI-FUNGAL [Concomitant]
  12. MELATONIN [Concomitant]
     Active Substance: MELATONIN
  13. ASA 81 [Concomitant]
     Active Substance: ASPIRIN
  14. POLYETHYLENE GLYCOL 3350. [Concomitant]
     Active Substance: POLYETHYLENE GLYCOL 3350
  15. ANORO ELLIPTA [Concomitant]
     Active Substance: UMECLIDINIUM BROMIDE\VILANTEROL TRIFENATATE
  16. KCL [Concomitant]
     Active Substance: POTASSIUM CHLORIDE

REACTIONS (1)
  - Cardiac disorder [None]

NARRATIVE: CASE EVENT DATE: 20201204
